FAERS Safety Report 16301087 (Version 1)
Quarter: 2019Q2

REPORT INFORMATION
  Report Type: Spontaneous
  Country: US (occurrence: US)
  Receive Date: 20190510
  Receipt Date: 20190510
  Transmission Date: 20190711
  Serious: No
  Sender: FDA-Public Use
  Company Number: US-ALKERMES INC.-ALK-2019-000650

PATIENT
  Age: 51 Year
  Sex: Male
  Weight: 90.25 kg

DRUGS (4)
  1. VIVITROL [Suspect]
     Active Substance: NALTREXONE
     Indication: DRUG DEPENDENCE
     Dosage: 380 MG, QMO
     Route: 030
     Dates: start: 20190206
  2. BACTRIM [Concomitant]
     Active Substance: SULFAMETHOXAZOLE\TRIMETHOPRIM
     Indication: PRODUCT USED FOR UNKNOWN INDICATION
     Dosage: UNK
     Route: 065
  3. OTHER THERAPEUTIC PRODUCTS [Concomitant]
     Active Substance: UNSPECIFIED INGREDIENT
     Indication: PRODUCT USED FOR UNKNOWN INDICATION
     Dosage: UNK
  4. VIVITROL [Suspect]
     Active Substance: NALTREXONE
     Dosage: 380 MG, QMO
     Route: 030
     Dates: start: 201806, end: 201806

REACTIONS (8)
  - Somnolence [Unknown]
  - Off label use [Not Recovered/Not Resolved]
  - Depression [Recovered/Resolved]
  - Apathy [Unknown]
  - Weight decreased [Not Recovered/Not Resolved]
  - Crying [Unknown]
  - Nausea [Recovered/Resolved]
  - Asocial behaviour [Unknown]

NARRATIVE: CASE EVENT DATE: 201806
